FAERS Safety Report 24672159 (Version 1)
Quarter: 2024Q4

REPORT INFORMATION
  Report Type: Report from Study
  Country: GB (occurrence: GB)
  Receive Date: 20241127
  Receipt Date: 20241127
  Transmission Date: 20250115
  Serious: Yes (Hospitalization)
  Sender: AMGEN
  Company Number: GB-002147023-NVSC2024GB225089

PATIENT
  Sex: Female

DRUGS (1)
  1. AIMOVIG [Suspect]
     Active Substance: ERENUMAB-AOOE
     Indication: Product used for unknown indication
     Dosage: UNK
     Route: 058

REACTIONS (5)
  - Seizure [Unknown]
  - Headache [Unknown]
  - Musculoskeletal stiffness [Unknown]
  - Malaise [Unknown]
  - Lip discolouration [Unknown]
